FAERS Safety Report 17128831 (Version 1)
Quarter: 2019Q4

REPORT INFORMATION
  Report Type: Spontaneous
  Country: US (occurrence: US)
  Receive Date: 20191206
  Receipt Date: 20191206
  Transmission Date: 20200122
  Serious: Yes (Life-Threatening, Hospitalization, Disabling, Other)
  Sender: FDA-Public Use
  Company Number: None

PATIENT
  Age: 50 Year
  Sex: Female
  Weight: 76.5 kg

DRUGS (5)
  1. JUUL (DEVICE\NICOTINE) [Suspect]
     Active Substance: DEVICE\NICOTINE
     Indication: SMOKING CESSATION THERAPY
     Route: 055
     Dates: start: 20190708, end: 20191107
  2. PROMETRIUM [Suspect]
     Active Substance: PROGESTERONE
  3. JUUL (DEVICE\NICOTINE) [Suspect]
     Active Substance: DEVICE\NICOTINE
     Indication: MENOPAUSE
     Route: 055
     Dates: start: 20190708, end: 20191107
  4. PROGESTERONE, BIO IDENTICAL [Concomitant]
  5. PROPYLENE GLYCOL [Suspect]
     Active Substance: PROPYLENE GLYCOL

REACTIONS (15)
  - Seasonal allergy [None]
  - Gastrooesophageal reflux disease [None]
  - Chest discomfort [None]
  - Hypoaesthesia [None]
  - Hyperhidrosis [None]
  - Tachyphrenia [None]
  - Palpitations [None]
  - Visual impairment [None]
  - Throat tightness [None]
  - Toxicity to various agents [None]
  - Chest pain [None]
  - Anxiety [None]
  - Oesophageal pain [None]
  - Throat irritation [None]
  - Mood swings [None]

NARRATIVE: CASE EVENT DATE: 20191029
